FAERS Safety Report 5639412-7 (Version None)
Quarter: 2008Q1

REPORT INFORMATION
  Report Type: 
  Country: None (occurrence: None)
  Receive Date: 20080222
  Receipt Date: 20080201
  Transmission Date: 20080703
  Serious: Yes (Other)
  Sender: FDA-Public Use
  Company Number: ENTC2008-0033

PATIENT
  Age: 70 Year
  Sex: Male

DRUGS (1)
  1. STALEVO 100 [Suspect]
     Dosage: 100 MG 2 TABS TID, ORAL
     Route: 048
     Dates: end: 20071227

REACTIONS (6)
  - DIARRHOEA [None]
  - DRUG DISPENSING ERROR [None]
  - DRUG TOXICITY [None]
  - MUSCLE RIGIDITY [None]
  - NAUSEA [None]
  - VOMITING [None]
